FAERS Safety Report 7965235-X (Version None)
Quarter: 2011Q4

REPORT INFORMATION
  Report Type: 
  Country: None (occurrence: None)
  Receive Date: 20111208
  Receipt Date: 20111201
  Transmission Date: 20120403
  Serious: Yes (Other)
  Sender: FDA-Public Use
  Company Number: US-BAYER-2011-115935

PATIENT
  Age: 53 Year
  Sex: Male
  Weight: 108.84 kg

DRUGS (3)
  1. BAYER EXTRA STRENGTH BACK + BODY PAIN [Suspect]
     Dosage: 2 DF, PRN
     Route: 048
  2. BAYER EXTRA STRENGTH BACK + BODY PAIN [Suspect]
     Indication: BACK PAIN
     Dosage: 3 DF, PRN
     Route: 048
  3. BAYER ADVANCED ASPIRIN EXTRA STRENGTH [Suspect]
     Indication: BACK PAIN
     Dosage: 2 DF, Q4HR
     Route: 048
     Dates: start: 20111103

REACTIONS (2)
  - FOREIGN BODY [None]
  - OESOPHAGEAL DISCOMFORT [None]
